FAERS Safety Report 9154340 (Version 1)
Quarter: 2013Q1

REPORT INFORMATION
  Report Type: Spontaneous
  Country: US (occurrence: US)
  Receive Date: 20130311
  Receipt Date: 20130311
  Transmission Date: 20140127
  Serious: No
  Sender: FDA-Public Use
  Company Number: US-PFIZER INC-2013082149

PATIENT
  Age: 55 Year
  Sex: Female
  Weight: 63.49 kg

DRUGS (4)
  1. CHANTIX [Suspect]
     Indication: SMOKING CESSATION THERAPY
     Dosage: 0.5 MG DAILY
     Route: 048
  2. OXYCODONE [Concomitant]
     Indication: PAIN
     Dosage: 15 MG, AS NEEDED
  3. LEXAPRO [Concomitant]
     Indication: PAIN
     Dosage: 20 MG DAILY
  4. FENTANYL [Concomitant]
     Indication: PAIN
     Dosage: 12.5 MG, ONCE EVERY TWO DAYS

REACTIONS (1)
  - Nausea [Recovered/Resolved]
